FAERS Safety Report 17468398 (Version 5)
Quarter: 2021Q3

REPORT INFORMATION
  Report Type: Spontaneous
  Country: PT (occurrence: PT)
  Receive Date: 20200227
  Receipt Date: 20210924
  Transmission Date: 20211014
  Serious: Yes (Death, Life-Threatening, Hospitalization, Other)
  Sender: FDA-Public Use
  Company Number: PT-MYLANLABS-2020M1021271

PATIENT
  Age: 55 Year
  Sex: Female

DRUGS (4)
  1. TACROLIMUS. [Suspect]
     Active Substance: TACROLIMUS
     Indication: IMMUNOSUPPRESSANT DRUG THERAPY
     Dosage: UNK
     Route: 065
     Dates: start: 200412, end: 201902
  2. MYCOPHENOLATE MOFETIL. [Suspect]
     Active Substance: MYCOPHENOLATE MOFETIL
     Indication: IMMUNOSUPPRESSANT DRUG THERAPY
     Dosage: UNK
     Route: 065
     Dates: start: 200412, end: 201902
  3. EVEROLIMUS. [Suspect]
     Active Substance: EVEROLIMUS
     Indication: IMMUNOSUPPRESSANT DRUG THERAPY
     Dosage: 0.5 MILLIGRAM, QD (0.25 MG, BID)
     Route: 065
  4. PREDNISOLONE. [Concomitant]
     Active Substance: PREDNISOLONE
     Indication: IMMUNOSUPPRESSANT DRUG THERAPY
     Dosage: 5 MG, BID
     Route: 065
     Dates: start: 200412

REACTIONS (11)
  - Chest pain [Fatal]
  - Disease recurrence [Unknown]
  - Off label use [Fatal]
  - Haemoptysis [Fatal]
  - Dyspnoea [Fatal]
  - Angiosarcoma [Fatal]
  - Pleural effusion [Fatal]
  - Malignant neoplasm progression [Fatal]
  - Metastases to lymph nodes [Fatal]
  - Metastases to muscle [Fatal]
  - Metastases to lung [Fatal]

NARRATIVE: CASE EVENT DATE: 201812
